FAERS Safety Report 16718532 (Version 4)
Quarter: 2024Q2

REPORT INFORMATION
  Report Type: Spontaneous
  Country: DE (occurrence: DE)
  Receive Date: 20190820
  Receipt Date: 20240520
  Transmission Date: 20240715
  Serious: Yes (Hospitalization, Other)
  Sender: FDA-Public Use
  Company Number: DE-CELLTRION INC.-2019DE023822

PATIENT

DRUGS (21)
  1. RITUXIMAB [Suspect]
     Active Substance: RITUXIMAB
     Indication: Diffuse large B-cell lymphoma
     Dosage: FURTHER LINES THERAPY, R-TEPIP REGIMEN, ONE CYCLE
     Route: 065
     Dates: start: 201807, end: 201907
  2. RITUXIMAB [Suspect]
     Active Substance: RITUXIMAB
     Dosage: FURTHER LINES THERAPY, R-TEPIP REGIMEN, ONE CYCLE
     Route: 065
     Dates: start: 201807, end: 201907
  3. RITUXIMAB [Suspect]
     Active Substance: RITUXIMAB
     Dosage: MONOTHERAPY, 2 CYCLES AFTER R-CHOP
     Route: 065
     Dates: start: 201808, end: 201901
  4. RITUXIMAB [Suspect]
     Active Substance: RITUXIMAB
     Dosage: MONOTHERAPY, 2 CYCLES AFTER R-CHOP
     Route: 065
     Dates: start: 201808, end: 201901
  5. RITUXIMAB [Suspect]
     Active Substance: RITUXIMAB
     Dosage: 2ND LINE THERAPY, ACCORDING TO R-CARBOPLATIN REGIMEN, 2 CYCLES
     Route: 065
     Dates: start: 201805, end: 201906
  6. RITUXIMAB [Suspect]
     Active Substance: RITUXIMAB
     Dosage: 2ND LINE THERAPY, ACCORDING TO R-CARBOPLATIN REGIMEN, 2 CYCLES
     Route: 065
     Dates: start: 201905, end: 201906
  7. RITUXIMAB [Suspect]
     Active Substance: RITUXIMAB
     Dosage: 1ST LINE THERAPY, ACCORDING TO R-CHOP REGIMEN, 6 CYCLES
     Route: 065
     Dates: start: 201808, end: 201901
  8. RITUXIMAB [Suspect]
     Active Substance: RITUXIMAB
     Dosage: 1ST LINE THERAPY, ACCORDING TO R-CHOP REGIMEN, 6 CYCLES
     Route: 065
     Dates: start: 201808, end: 201901
  9. GEMCITABINE [Suspect]
     Active Substance: GEMCITABINE
     Indication: Diffuse large B-cell lymphoma
     Dosage: 2ND LINE THERAPY, ACCORDING TO R-GEMCITABIN/CARBOPLATIN REGIMEN, 2 CYCLES
     Route: 065
     Dates: start: 201905, end: 201906
  10. PREDNISOLONE [Suspect]
     Active Substance: PREDNISOLONE
     Indication: Diffuse large B-cell lymphoma
     Dosage: FURTHER LINE THERAPY, ACCORDING TO TEPLP REGIMEN, 1 CYCLE
     Route: 065
     Dates: start: 201907, end: 201907
  11. CYCLOPHOSPHAMIDE\DOXORUBICIN\PREDNISONE\VINCRISTINE [Suspect]
     Active Substance: CYCLOPHOSPHAMIDE\DOXORUBICIN\PREDNISONE\VINCRISTINE
     Indication: Diffuse large B-cell lymphoma
     Dosage: 1ST LINE THERAPY, ACCORDING TO R-CHOP REGIMEN, 6 CYCLES
     Route: 065
     Dates: start: 201808, end: 201901
  12. TROFOSFAMIDE [Suspect]
     Active Substance: TROFOSFAMIDE
     Indication: Diffuse large B-cell lymphoma
     Dosage: FURTHER LINE THERAPY, ACCORDING TO TEPLP REGIMEN, 1 CYCLE
     Route: 065
     Dates: start: 201907, end: 201907
  13. PROCARBAZINE [Suspect]
     Active Substance: PROCARBAZINE
     Indication: Diffuse large B-cell lymphoma
     Dosage: FURTHER LINE THERAPY, ACCORDING TO TEPLP REGIMEN, 1 CYCLE
     Route: 065
     Dates: start: 201907, end: 201907
  14. ETOPOSIDE [Suspect]
     Active Substance: ETOPOSIDE
     Indication: Diffuse large B-cell lymphoma
     Dosage: FURTHER LINE THERAPY, ACCORDING TO TEPLP REGIMEN, 1 CYCLE
     Route: 065
     Dates: start: 201907, end: 201907
  15. CARBOPLATIN [Suspect]
     Active Substance: CARBOPLATIN
     Indication: Diffuse large B-cell lymphoma
     Dosage: 2ND LINE THERAPY, ACCORDING TO R-GEMCITABIN/CARBOPLATIN REGIMEN, 2 CYCLES
     Route: 065
     Dates: start: 201905, end: 201906
  16. AMOXICILLIN [Concomitant]
     Active Substance: AMOXICILLIN
     Indication: Hypertension
     Dosage: 5 UG
     Route: 048
  17. PANTOPRAZOLE [Concomitant]
     Active Substance: PANTOPRAZOLE
     Dosage: 40 UG
     Route: 048
  18. DIHYDRALAZINE [Concomitant]
     Active Substance: DIHYDRALAZINE
     Indication: Hypertension
     Dosage: 25 UG
     Route: 048
  19. ASPIRIN [Concomitant]
     Active Substance: ASPIRIN
     Dosage: 100 UG
     Route: 048
  20. TORSEMIDE [Concomitant]
     Active Substance: TORSEMIDE
     Indication: Hypertension
     Dosage: 25 MICROGRAM
     Route: 048
  21. MOXONIDINE [Concomitant]
     Active Substance: MOXONIDINE
     Indication: Hypertension
     Dosage: 0.4 UG
     Route: 048

REACTIONS (8)
  - Alanine aminotransferase increased [Unknown]
  - Haemoglobin decreased [Unknown]
  - Urosepsis [Unknown]
  - Neuropathy peripheral [Unknown]
  - Renal failure [Unknown]
  - Neutropenia [Unknown]
  - Dyspnoea [Recovering/Resolving]
  - Product use issue [Unknown]

NARRATIVE: CASE EVENT DATE: 20190701
